FAERS Safety Report 9562600 (Version 2)
Quarter: 2013Q4

REPORT INFORMATION
  Report Type: Spontaneous
  Country: US (occurrence: US)
  Receive Date: 20130927
  Receipt Date: 20131024
  Transmission Date: 20140711
  Serious: No
  Sender: FDA-Public Use
  Company Number: US-009507513-1309USA009712

PATIENT
  Age: 55 Year
  Sex: Female
  Weight: 63.39 kg

DRUGS (3)
  1. SAPHRIS [Suspect]
     Indication: BIPOLAR DISORDER
     Dosage: 5 MG, QD
     Route: 060
     Dates: start: 20110522, end: 20130711
  2. LAMICTAL [Concomitant]
  3. PROZAC [Concomitant]

REACTIONS (5)
  - Hypokinesia [Recovering/Resolving]
  - Dystonia [Recovering/Resolving]
  - Akathisia [Recovering/Resolving]
  - Oculogyric crisis [Recovering/Resolving]
  - Dyskinesia [Recovering/Resolving]
